FAERS Safety Report 14187822 (Version 1)
Quarter: 2017Q4

REPORT INFORMATION
  Report Type: Spontaneous
  Country: KR (occurrence: KR)
  Receive Date: 20171114
  Receipt Date: 20171114
  Transmission Date: 20180321
  Serious: Yes (Hospitalization)
  Sender: FDA-Public Use
  Company Number: KR-JNJFOC-20171108582

PATIENT

DRUGS (4)
  1. DOXORUBICIN HYDROCHLORIDE. [Suspect]
     Active Substance: DOXORUBICIN HYDROCHLORIDE
     Indication: HEPATOCELLULAR CARCINOMA
     Route: 065
  2. DEXAMETHASONE. [Concomitant]
     Active Substance: DEXAMETHASONE
     Indication: POST EMBOLISATION SYNDROME
     Route: 065
  3. RAMOSETRON [Concomitant]
     Active Substance: RAMOSETRON HYDROCHLORIDE
     Indication: PRODUCT USED FOR UNKNOWN INDICATION
     Route: 065
  4. LIPIDOL [Concomitant]
     Route: 065

REACTIONS (7)
  - Blood creatinine increased [Unknown]
  - Off label use [Unknown]
  - Product use issue [Unknown]
  - Hyperglycaemia [Unknown]
  - Adverse event [Unknown]
  - Post embolisation syndrome [Unknown]
  - Product use in unapproved indication [Unknown]
